FAERS Safety Report 5143259-8 (Version None)
Quarter: 2006Q4

REPORT INFORMATION
  Report Type: 
  Country: None (occurrence: None)
  Receive Date: 20061103
  Receipt Date: 20061025
  Transmission Date: 20070319
  Serious: Yes (Other)
  Sender: FDA-Public Use
  Company Number: PHEH2006US13370

PATIENT
  Sex: Female

DRUGS (3)
  1. ZELNORM [Suspect]
     Dates: start: 20030101
  2. ZOLOFT [Concomitant]
  3. PAXIL [Concomitant]

REACTIONS (5)
  - DEPRESSION [None]
  - HEADACHE [None]
  - SEDATION [None]
  - SUICIDE ATTEMPT [None]
  - VERTIGO [None]
